FAERS Safety Report 5954638-0 (Version None)
Quarter: 2008Q4

REPORT INFORMATION
  Report Type: 
  Country: None (occurrence: None)
  Receive Date: 20081117
  Receipt Date: 20081009
  Transmission Date: 20090506
  Serious: Yes (Other)
  Sender: FDA-Public Use
  Company Number: AU-JNJFOC-20081002270

PATIENT
  Sex: Male

DRUGS (1)
  1. DURAGESIC-100 [Suspect]
     Indication: ARTHRALGIA
     Dosage: ONLY FOR 12 HOUR PERIOD AND TAKE THEM OFF DURING THE NIGHT
     Route: 062

REACTIONS (9)
  - AGITATION [None]
  - BLOOD PRESSURE DECREASED [None]
  - BODY TEMPERATURE INCREASED [None]
  - DIZZINESS [None]
  - DYSPNOEA [None]
  - HEART RATE DECREASED [None]
  - INAPPROPRIATE SCHEDULE OF DRUG ADMINISTRATION [None]
  - NAUSEA [None]
  - RESPIRATORY RATE DECREASED [None]
